FAERS Safety Report 7059915-0 (Version None)
Quarter: 2010Q4

REPORT INFORMATION
  Report Type: 
  Country: None (occurrence: None)
  Receive Date: 20101025
  Receipt Date: 20101020
  Transmission Date: 20110411
  Serious: Yes (Hospitalization)
  Sender: FDA-Public Use
  Company Number: DE-ELI_LILLY_AND_COMPANY-DE201009005957

PATIENT
  Sex: Female
  Weight: 74.8 kg

DRUGS (8)
  1. NECITUMUMAB (11F8) (LY3012211) [Suspect]
     Indication: NON-SMALL CELL LUNG CANCER
     Dosage: 800 MG, UNK
     Route: 042
     Dates: start: 20100916
  2. PEMETREXED [Suspect]
     Indication: NON-SMALL CELL LUNG CANCER
     Dosage: 940 MG, UNK
     Route: 042
     Dates: start: 20100916
  3. CISPLATIN [Suspect]
     Indication: NON-SMALL CELL LUNG CANCER
     Dosage: 140 MG, UNK
     Route: 042
     Dates: start: 20100916
  4. ACC                                /00082801/ [Concomitant]
     Dosage: 600 D/F, 2/D
  5. NEXIUM [Concomitant]
     Dosage: 20 D/F, DAILY (1/D)
  6. IBUPROFEN TABLETS [Concomitant]
     Dosage: 400 D/F, DAILY (1/D)
  7. CODICAPS [Concomitant]
     Dosage: 1 D/F, DAILY (1/D)
  8. MAGNESIOCARD [Concomitant]
     Dosage: UNK, 3/D

REACTIONS (2)
  - NAUSEA [None]
  - VERTIGO [None]
